FAERS Safety Report 4437124-9 (Version None)
Quarter: 2004Q3

REPORT INFORMATION
  Report Type: 
  Country: None (occurrence: None)
  Receive Date: 20040726
  Receipt Date: 20040322
  Transmission Date: 20050211
  Serious: No
  Sender: FDA-Public Use
  Company Number: USA040362838

PATIENT
  Age: 65 Year
  Sex: Female

DRUGS (8)
  1. FORTEO [Suspect]
     Indication: OSTEOPOROSIS
     Dates: start: 20040201
  2. PSEUDOEPHEDRINE/GUAIFENESIN [Concomitant]
  3. BACLOFEN [Concomitant]
  4. OXYBUTNIN [Concomitant]
  5. ZYRTEC [Concomitant]
  6. ZOCOR [Concomitant]
  7. ZOLOFT [Concomitant]
  8. TRIMETHOPRIM [Concomitant]

REACTIONS (6)
  - DRY MOUTH [None]
  - DRY THROAT [None]
  - GINGIVITIS [None]
  - GLOSSODYNIA [None]
  - LIP DRY [None]
  - LIP SLOUGHING [None]
